FAERS Safety Report 20825373 (Version 1)
Quarter: 2022Q2

REPORT INFORMATION
  Report Type: Spontaneous
  Country: US (occurrence: US)
  Receive Date: 20220513
  Receipt Date: 20220513
  Transmission Date: 20220721
  Serious: Yes (Other)
  Sender: FDA-Public Use
  Company Number: US-BOIRON-202200281

PATIENT

DRUGS (1)
  1. HOMEOPATHICS [Suspect]
     Active Substance: HOMEOPATHICS
     Indication: Product used for unknown indication

REACTIONS (3)
  - Angioedema [Unknown]
  - Hypersensitivity [Unknown]
  - Feeling hot [Unknown]
